FAERS Safety Report 22603103 (Version 1)
Quarter: 2023Q2

REPORT INFORMATION
  Report Type: Spontaneous
  Country: GR (occurrence: GR)
  Receive Date: 20230615
  Receipt Date: 20230615
  Transmission Date: 20230722
  Serious: Yes (Hospitalization, Other)
  Sender: FDA-Public Use
  Company Number: GR-CELLTRION INC.-2023GR006856

PATIENT

DRUGS (1)
  1. ADALIMUMAB [Suspect]
     Active Substance: ADALIMUMAB
     Indication: Psoriasis
     Dosage: DOSAGE1: UNIT=NOT AVAILABLE
     Route: 058

REACTIONS (20)
  - Haemophagocytic lymphohistiocytosis [Recovering/Resolving]
  - Altered state of consciousness [Unknown]
  - Ascites [Recovering/Resolving]
  - Tuberculosis of central nervous system [Unknown]
  - Mycobacterium avium complex infection [Recovering/Resolving]
  - Pyrexia [Recovered/Resolved]
  - Pyrexia [Recovered/Resolved]
  - Pancytopenia [Recovering/Resolving]
  - Tuberculosis [Unknown]
  - Atypical mycobacterial infection [Recovering/Resolving]
  - Tuberculosis [Recovering/Resolving]
  - Encephalitis [Recovering/Resolving]
  - Meningoencephalitis bacterial [Recovering/Resolving]
  - Splenomegaly [Unknown]
  - Blood alkaline phosphatase increased [Recovered/Resolved]
  - Granuloma [Unknown]
  - Lymphadenopathy [Unknown]
  - Gamma-glutamyltransferase increased [Recovered/Resolved]
  - Hepatomegaly [Unknown]
  - C-reactive protein increased [Unknown]
